FAERS Safety Report 16311434 (Version 3)
Quarter: 2020Q2

REPORT INFORMATION
  Report Type: Spontaneous
  Country: FR (occurrence: FR)
  Receive Date: 20190514
  Receipt Date: 20200519
  Transmission Date: 20200713
  Serious: Yes (Hospitalization, Other)
  Sender: FDA-Public Use
  Company Number: FR-TOPROL ACQUISITION LLC-2019-TOP-000024

PATIENT
  Age: 58 Year
  Sex: Female

DRUGS (11)
  1. DIHYDROCODEINE [Suspect]
     Active Substance: DIHYDROCODEINE
     Indication: SUICIDE ATTEMPT
     Dosage: 600 MG, ONCE
     Route: 065
  2. NOCTAMIDE [Concomitant]
     Active Substance: LORMETAZEPAM
     Dosage: 600 MG, ONCE
  3. SPIRONOLACTONE. [Concomitant]
     Active Substance: SPIRONOLACTONE
     Dosage: 600 MG, ONCE
  4. LAMOTRIGINE. [Concomitant]
     Active Substance: LAMOTRIGINE
     Dosage: 600 MG, ONCE
  5. PREGABALIN. [Concomitant]
     Active Substance: PREGABALIN
     Dosage: 600 MG, ONCE
  6. DOMPERIDONE [Concomitant]
     Active Substance: DOMPERIDONE
     Dosage: 600 MG, ONCE
  7. METOPROLOL SUCCINATE. [Suspect]
     Active Substance: METOPROLOL SUCCINATE
     Indication: SUICIDE ATTEMPT
     Dosage: 5.4 G, ONCE
     Route: 048
  8. FLUOXETINE [Concomitant]
     Active Substance: FLUOXETINE HYDROCHLORIDE
     Dosage: 600 MG, ONCE
  9. ESOMEPRAZOLE. [Concomitant]
     Active Substance: ESOMEPRAZOLE MAGNESIUM
     Dosage: 600 MG, ONCE
  10. LORAZEPAM. [Suspect]
     Active Substance: LORAZEPAM
     Indication: SUICIDE ATTEMPT
     Dosage: 32.5 MG, ONCE
     Route: 065
  11. TOPIRAMATE. [Concomitant]
     Active Substance: TOPIRAMATE
     Dosage: 600 MG, ONCE

REACTIONS (6)
  - Pneumonia aspiration [Unknown]
  - Somnolence [Unknown]
  - Hypotension [Unknown]
  - Sinus bradycardia [Unknown]
  - Overdose [Unknown]
  - Suicide attempt [Unknown]
